FAERS Safety Report 8907565 (Version 1)
Quarter: 2012Q4

REPORT INFORMATION
  Report Type: 
  Country: SE (occurrence: SE)
  Receive Date: 20121113
  Receipt Date: 20121113
  Transmission Date: 20130627
  Serious: Yes (Hospitalization)
  Sender: FDA-Public Use
  Company Number: SE-PFIZER INC-2012280279

PATIENT
  Age: 32 Year
  Sex: Female
  Weight: 71.5 kg

DRUGS (6)
  1. GENOTROPIN [Suspect]
     Indication: GROWTH HORMONE DEFICIENCY
     Dosage: 1.2 mg, 1x/day,7 injections/week
     Route: 058
     Dates: start: 20091102
  2. LEVOTHYROXINE [Concomitant]
     Indication: TSH DECREASED
     Dosage: UNK
     Dates: start: 2003
  3. DHEA [Concomitant]
     Indication: ACQUIRED HYPOTHYROIDISM
     Dosage: UNK
     Dates: start: 20090504
  4. CORTISONACETAT [Concomitant]
     Indication: ADRENAL INSUFFICIENCY
     Dosage: UNK
     Dates: start: 20090504
  5. ESTRADIOL [Concomitant]
     Indication: HYPOGONADISM
     Dosage: UNK
     Dates: start: 20090504
  6. DESMOPRESSIN [Concomitant]
     Indication: DIABETES INSIPIDUS
     Dosage: UNK
     Dates: start: 20090504

REACTIONS (1)
  - Gastroenteritis viral [Unknown]
